FAERS Safety Report 5339661-1 (Version None)
Quarter: 2007Q2

REPORT INFORMATION
  Report Type: 
  Country: None (occurrence: None)
  Receive Date: 20070525
  Receipt Date: 20070417
  Transmission Date: 20071010
  Serious: Yes (Hospitalization)
  Sender: FDA-Public Use
  Company Number: 200605IM000301

PATIENT
  Age: 59 Year
  Sex: Female
  Weight: 92.9874 kg

DRUGS (11)
  1. INTERFERON-GAMMA 1B [Suspect]
     Indication: IDIOPATHIC PULMONARY FIBROSIS
     Dosage: 200 UG; TIW; SUBCUTANEOUS
     Route: 058
     Dates: start: 20051220
  2. SYNTHROID [Concomitant]
  3. DYAZIDE [Concomitant]
  4. ZOCOR [Concomitant]
  5. PREVACID [Concomitant]
  6. ALBUTEROL [Concomitant]
  7. NEXIUM [Concomitant]
  8. RHINOCORT [Concomitant]
  9. TUSSIONEX [Concomitant]
  10. GUAIFENESIN [Concomitant]
  11. AMBIEN [Concomitant]

REACTIONS (3)
  - BRONCHITIS [None]
  - LIVER SCAN ABNORMAL [None]
  - VOMITING [None]
